FAERS Safety Report 22159117 (Version 1)
Quarter: 2023Q1

REPORT INFORMATION
  Report Type: Spontaneous
  Country: AU (occurrence: AU)
  Receive Date: 20230331
  Receipt Date: 20230331
  Transmission Date: 20230418
  Serious: Yes (Hospitalization)
  Sender: FDA-Public Use
  Company Number: AU-BIOVITRUM-2023-AU-007979

PATIENT
  Sex: Male

DRUGS (1)
  1. ANAKINRA [Suspect]
     Active Substance: ANAKINRA
     Indication: Tumour necrosis factor receptor-associated periodic syndrome

REACTIONS (3)
  - Off label use [Unknown]
  - Tumour necrosis factor receptor-associated periodic syndrome [Unknown]
  - Condition aggravated [Unknown]
